FAERS Safety Report 6589720-0 (Version None)
Quarter: 2010Q1

REPORT INFORMATION
  Report Type: 
  Country: None (occurrence: None)
  Receive Date: 20100212
  Receipt Date: 20100129
  Transmission Date: 20100710
  Serious: Yes (Hospitalization)
  Sender: FDA-Public Use
  Company Number: SPV1-2009-02308

PATIENT
  Age: 12 Year
  Sex: Male
  Weight: 30.7 kg

DRUGS (12)
  1. ELAPRASE [Suspect]
     Indication: MUCOPOLYSACCHARIDOSIS II
     Dosage: 0.5 MG/KG, 1X/WEEK, IV DRIP
     Route: 041
     Dates: start: 20060914
  2. NEXIUM [Concomitant]
  3. SEROQUEL [Concomitant]
  4. NEURONTIN [Concomitant]
  5. CLONIDINE [Concomitant]
  6. SINGULAIR [Concomitant]
  7. VALIUM [Concomitant]
  8. GLUCOSAMINE (GLUCOSAMINE) [Concomitant]
  9. VITAMIN B COMPLEX CAP [Concomitant]
  10. ZINC (ZINC) [Concomitant]
  11. CULTURELLE (LACTOBACILLUS NOS) [Concomitant]
  12. GAS-X (SILICON DIOXIDE, SIMETICONE) [Concomitant]

REACTIONS (4)
  - DISEASE PROGRESSION [None]
  - MUCOPOLYSACCHARIDOSIS II [None]
  - NEUROLOGICAL DECOMPENSATION [None]
  - RESPIRATORY ARREST [None]
